FAERS Safety Report 25066285 (Version 6)
Quarter: 2025Q2

REPORT INFORMATION
  Report Type: Report from Study
  Country: US (occurrence: US)
  Receive Date: 20250312
  Receipt Date: 20250626
  Transmission Date: 20250716
  Serious: Yes (Other)
  Sender: NOVARTIS
  Company Number: US-002147023-NVSC2024US210911

PATIENT
  Age: 19 Year
  Sex: Female

DRUGS (2)
  1. COSENTYX [Suspect]
     Active Substance: SECUKINUMAB
     Indication: Ankylosing spondylitis
     Dosage: 1 DOSAGE FORM, QMO
     Route: 065
     Dates: start: 202311
  2. COSENTYX [Suspect]
     Active Substance: SECUKINUMAB
     Dosage: 300 MG, QMO
     Route: 058
     Dates: start: 20240129

REACTIONS (7)
  - Product availability issue [Unknown]
  - Illness [Unknown]
  - Device leakage [Unknown]
  - Accidental exposure to product [Unknown]
  - Incorrect dose administered by device [Unknown]
  - Inappropriate schedule of product administration [Unknown]
  - Device malfunction [Unknown]

NARRATIVE: CASE EVENT DATE: 20241028
